FAERS Safety Report 12646457 (Version 2)
Quarter: 2016Q3

REPORT INFORMATION
  Report Type: Spontaneous
  Country: AR (occurrence: AR)
  Receive Date: 20160812
  Receipt Date: 20160903
  Transmission Date: 20161109
  Serious: Yes (Other)
  Sender: FDA-Public Use
  Company Number: AR-AMGEN-ARGSP2016103963

PATIENT
  Age: 64 Year
  Sex: Female

DRUGS (4)
  1. PREDNISONA [Concomitant]
     Active Substance: PREDNISONE
     Dosage: UNK
  2. ENALAPRIL MALEATE. [Concomitant]
     Active Substance: ENALAPRIL MALEATE
     Dosage: UNK
  3. ENBREL [Suspect]
     Active Substance: ETANERCEPT
     Indication: RHEUMATOID ARTHRITIS
     Dosage: UNK
     Route: 065
  4. FENITOINA [Concomitant]
     Active Substance: PHENYTOIN
     Dosage: UNK

REACTIONS (7)
  - Disease progression [Unknown]
  - Meningioma [Unknown]
  - Breast cancer [Unknown]
  - Cholecystitis [Unknown]
  - Hypertension [Unknown]
  - Meningioma [Unknown]
  - Brain neoplasm [Unknown]

NARRATIVE: CASE EVENT DATE: 2008
